FAERS Safety Report 9751133 (Version 1)
Quarter: 2013Q4

REPORT INFORMATION
  Report Type: Spontaneous
  Country: US (occurrence: US)
  Receive Date: 20131212
  Receipt Date: 20131212
  Transmission Date: 20140711
  Serious: Yes (Other)
  Sender: FDA-Public Use
  Company Number: US-B.I. PHARMACEUTICALS,INC./RIDGEFIELD-2013-BI-41142BP

PATIENT
  Sex: Female

DRUGS (1)
  1. TRADJENTA [Suspect]

REACTIONS (1)
  - Cerebrovascular accident [Unknown]
